FAERS Safety Report 9261678 (Version 1)
Quarter: 2013Q2

REPORT INFORMATION
  Report Type: Report from Study
  Country: CA (occurrence: CA)
  Receive Date: 20130429
  Receipt Date: 20130429
  Transmission Date: 20140414
  Serious: Yes (Other)
  Sender: FDA-Public Use
  Company Number: CA-ABBOTT-11P-028-0873045-00

PATIENT
  Age: 40 Year
  Sex: Male
  Weight: 104.42 kg

DRUGS (4)
  1. HUMIRA 40 MG/0.8 ML PEN [Suspect]
     Indication: PSORIASIS
     Route: 058
     Dates: start: 20110208
  2. VITAMIN D [Concomitant]
     Indication: PSORIASIS
     Route: 048
     Dates: start: 2009
  3. PAROXETINE [Concomitant]
     Indication: ANXIETY
     Route: 048
     Dates: start: 2009
  4. METHYLPHENIDATE [Concomitant]
     Indication: ATTENTION DEFICIT/HYPERACTIVITY DISORDER
     Route: 048
     Dates: start: 201101

REACTIONS (5)
  - Volvulus of small bowel [Not Recovered/Not Resolved]
  - Hernia [Not Recovered/Not Resolved]
  - Abdominal pain upper [Not Recovered/Not Resolved]
  - Post procedural infection [Not Recovered/Not Resolved]
  - Eating disorder [Not Recovered/Not Resolved]
